FAERS Safety Report 24970727 (Version 1)
Quarter: 2025Q1

REPORT INFORMATION
  Report Type: Spontaneous
  Country: DE (occurrence: DE)
  Receive Date: 20250214
  Receipt Date: 20250214
  Transmission Date: 20250409
  Serious: Yes (Hospitalization)
  Sender: ELI LILLY AND COMPANY
  Company Number: DE-ELI_LILLY_AND_COMPANY-DE202407005024

PATIENT
  Age: 51 Year
  Sex: Female

DRUGS (5)
  1. LEBRIKIZUMAB [Suspect]
     Active Substance: LEBRIKIZUMAB
     Indication: Dermatitis atopic
     Dosage: 250 MG, BID
     Route: 065
     Dates: start: 20240610
  2. LEBRIKIZUMAB [Suspect]
     Active Substance: LEBRIKIZUMAB
     Dosage: 250 MG, BID
     Route: 065
     Dates: start: 20240624
  3. LEBRIKIZUMAB [Suspect]
     Active Substance: LEBRIKIZUMAB
     Dosage: 250 MG, DAILY
     Route: 065
     Dates: start: 20240708
  4. PREGABALIN [Concomitant]
     Active Substance: PREGABALIN
     Indication: Product used for unknown indication
     Dosage: 50 MG, DAILY
     Route: 065
  5. ESCITALOPRAM [Concomitant]
     Active Substance: ESCITALOPRAM OXALATE
     Indication: Product used for unknown indication
     Dosage: 15 MG, DAILY
     Route: 065

REACTIONS (4)
  - Eczema [Recovering/Resolving]
  - Skin exfoliation [Unknown]
  - Skin lesion inflammation [Unknown]
  - Drug eruption [Unknown]

NARRATIVE: CASE EVENT DATE: 20240615
